FAERS Safety Report 15189606 (Version 3)
Quarter: 2018Q3

REPORT INFORMATION
  Report Type: Report from Study
  Country: US (occurrence: US)
  Receive Date: 20180724
  Receipt Date: 20180831
  Transmission Date: 20181010
  Serious: No
  Sender: FDA-Public Use
  Company Number: PHEH2018US030155

PATIENT
  Sex: Male

DRUGS (1)
  1. GILENYA [Suspect]
     Active Substance: FINGOLIMOD HYDROCHLORIDE
     Indication: MULTIPLE SCLEROSIS
     Dosage: 0.5 MG, QD
     Route: 048
     Dates: start: 20180716

REACTIONS (6)
  - Visual impairment [Unknown]
  - Cough [Unknown]
  - Fatigue [Unknown]
  - Burning sensation [Recovering/Resolving]
  - Abdominal pain upper [Unknown]
  - Depression [Unknown]
